FAERS Safety Report 25895984 (Version 1)
Quarter: 2025Q4

REPORT INFORMATION
  Report Type: Spontaneous
  Country: CN (occurrence: CN)
  Receive Date: 20251008
  Receipt Date: 20251008
  Transmission Date: 20260118
  Serious: Yes (Other)
  Sender: MERCK SHARP & DOHME LLC
  Company Number: CN-009507513-2334443

PATIENT
  Age: 88 Year
  Sex: Female
  Weight: 53 kg

DRUGS (1)
  1. INVANZ [Suspect]
     Active Substance: ERTAPENEM SODIUM
     Indication: Anti-infective therapy
     Dosage: 1 G, 1 TIME PER DAY
     Route: 041
     Dates: start: 20250915, end: 20250922

REACTIONS (3)
  - Dementia [Recovered/Resolved]
  - Depressed level of consciousness [Recovered/Resolved]
  - Logorrhoea [Recovered/Resolved]

NARRATIVE: CASE EVENT DATE: 20250921
